FAERS Safety Report 10907302 (Version 1)
Quarter: 2015Q1

REPORT INFORMATION
  Report Type: Spontaneous
  Country: CN (occurrence: CN)
  Receive Date: 20150312
  Receipt Date: 20150312
  Transmission Date: 20150721
  Serious: Yes (Hospitalization)
  Sender: FDA-Public Use
  Company Number: CN-NOVOPROD-441147

PATIENT
  Age: 59 Year
  Sex: Female
  Weight: 49 kg

DRUGS (4)
  1. LANTUS [Suspect]
     Active Substance: INSULIN GLARGINE
     Indication: DIABETES MELLITUS
     Dosage: 300 U, TID
     Route: 058
     Dates: start: 20140627, end: 20140712
  2. THIOCTIC ACID [Concomitant]
     Active Substance: .ALPHA.-LIPOIC ACID, (+/-)-
     Indication: SUPPLEMENTATION THERAPY
     Dosage: 0.3 G, QD
     Route: 041
     Dates: start: 20140702, end: 20140712
  3. NOVORAPID [Suspect]
     Active Substance: INSULIN ASPART
     Indication: DIABETES MELLITUS
     Dosage: 5 U, TID
     Route: 058
     Dates: start: 20140627, end: 20140712
  4. CITICOLINE SODIUM [Concomitant]
     Active Substance: CITICOLINE SODIUM
     Indication: SUPPLEMENTATION THERAPY
     Dosage: 0.5 G, QD
     Route: 041
     Dates: start: 20140702, end: 20140712

REACTIONS (1)
  - Erythema multiforme [Unknown]

NARRATIVE: CASE EVENT DATE: 20140712
